FAERS Safety Report 10197666 (Version 1)
Quarter: 2014Q2

REPORT INFORMATION
  Report Type: Spontaneous
  Country: None (occurrence: US)
  Receive Date: 20140527
  Receipt Date: 20140527
  Transmission Date: 20141212
  Serious: No
  Sender: FDA-Public Use
  Company Number: US-NOVEN-14US009352

PATIENT
  Age: 68 Year
  Sex: Female

DRUGS (5)
  1. MINIVELLE [Suspect]
     Indication: HOT FLUSH
     Dosage: 0.1 MG/DAY, UNK
     Route: 062
     Dates: start: 2014
  2. MINIVELLE [Suspect]
     Dosage: 0.1 MG/DAY, UNK
     Route: 062
     Dates: start: 201401, end: 2014
  3. CALCIUM [Concomitant]
     Indication: BONE LOSS
     Dosage: UNK; QD
     Route: 048
  4. PROLIA [Concomitant]
     Indication: OSTEOARTHRITIS
     Dosage: 2 X A YEAR
     Route: 058
  5. PROLIA [Concomitant]
     Indication: OSTEOPENIA

REACTIONS (3)
  - Urinary incontinence [Not Recovered/Not Resolved]
  - Urinary hesitation [Not Recovered/Not Resolved]
  - Hot flush [Not Recovered/Not Resolved]
